FAERS Safety Report 10879589 (Version 2)
Quarter: 2015Q1

REPORT INFORMATION
  Report Type: Report from Study
  Country: US (occurrence: US)
  Receive Date: 20150302
  Receipt Date: 20150331
  Transmission Date: 20150721
  Serious: Yes (Hospitalization, Other)
  Sender: FDA-Public Use
  Company Number: US-ABBVIE-15K-163-1352795-00

PATIENT
  Age: 73 Year
  Sex: Male

DRUGS (5)
  1. METHOTREXATE [Concomitant]
     Active Substance: METHOTREXATE
     Indication: PRODUCT USED FOR UNKNOWN INDICATION
  2. HUMIRA [Suspect]
     Active Substance: ADALIMUMAB
     Indication: RHEUMATOID ARTHRITIS
     Route: 065
     Dates: start: 200405, end: 2012
  3. HUMIRA [Suspect]
     Active Substance: ADALIMUMAB
     Route: 065
  4. HUMIRA [Suspect]
     Active Substance: ADALIMUMAB
     Route: 065
     Dates: start: 2012, end: 201210
  5. HUMIRA [Suspect]
     Active Substance: ADALIMUMAB
     Route: 065
     Dates: start: 201211, end: 2014

REACTIONS (10)
  - Coronary artery bypass [Recovered/Resolved]
  - Pleural effusion [Recovered/Resolved]
  - Nephrolithiasis [Recovered/Resolved]
  - Cataract operation [Recovered/Resolved]
  - Carotid artery stenosis [Recovered/Resolved]
  - Transient ischaemic attack [Recovered/Resolved]
  - Cataract operation [Recovered/Resolved]
  - Pneumothorax [Recovered/Resolved]
  - Cardiac operation [Recovered/Resolved]
  - Lung infection [Unknown]

NARRATIVE: CASE EVENT DATE: 2012
